FAERS Safety Report 4538227-0 (Version None)
Quarter: 2004Q4

REPORT INFORMATION
  Report Type: 
  Country: None (occurrence: None)
  Receive Date: 20041227
  Receipt Date: 20041215
  Transmission Date: 20050328
  Serious: Yes (Hospitalization)
  Sender: FDA-Public Use
  Company Number: US-JNJFOC-20041204883

PATIENT
  Sex: Female

DRUGS (15)
  1. INFIXIMAB [Suspect]
     Indication: RHEUMATOID ARTHRITIS
     Route: 042
  2. OXYCONTIN [Concomitant]
  3. VICODIN [Concomitant]
  4. VICODIN [Concomitant]
     Dosage: 5/500 4 TABS DAILY
  5. COUMADIN [Concomitant]
  6. LISINOPRIL [Concomitant]
  7. PRAVACHOL [Concomitant]
  8. LASIX [Concomitant]
  9. AVANDIA [Concomitant]
  10. PRANDIN [Concomitant]
  11. PREDNISONE TAB [Concomitant]
  12. NEURONTIN [Concomitant]
  13. PREVACID [Concomitant]
  14. ADVAIR DISKUS 500/50 [Concomitant]
  15. ADVAIR DISKUS 500/50 [Concomitant]

REACTIONS (6)
  - ANAEMIA [None]
  - CORONARY ARTERY DISEASE [None]
  - IRON DEFICIENCY ANAEMIA [None]
  - PULMONARY HYPERTENSION [None]
  - STAPHYLOCOCCAL INFECTION [None]
  - URINARY TRACT INFECTION [None]
